FAERS Safety Report 25406132 (Version 1)
Quarter: 2025Q2

REPORT INFORMATION
  Report Type: Spontaneous
  Country: CN (occurrence: CN)
  Receive Date: 20250606
  Receipt Date: 20250606
  Transmission Date: 20250717
  Serious: Yes (Hospitalization, Other)
  Sender: POINTVIEW HOLDINGS LLC
  Company Number: CN-Pointview-000002

PATIENT
  Age: 80 Year
  Sex: Female

DRUGS (1)
  1. PREDNISONE [Suspect]
     Active Substance: PREDNISONE
     Indication: Organising pneumonia
     Route: 048

REACTIONS (1)
  - Pulmonary embolism [Recovered/Resolved]
